FAERS Safety Report 6689365-8 (Version None)
Quarter: 2010Q2

REPORT INFORMATION
  Report Type: 
  Country: None (occurrence: None)
  Receive Date: 20100419
  Receipt Date: 20100419
  Transmission Date: 20101027
  Serious: Yes (Life-Threatening, Disabling, Other)
  Sender: FDA-Public Use
  Company Number: None

PATIENT
  Age: 48 Year
  Sex: Female
  Weight: 57.6068 kg

DRUGS (1)
  1. CHANTIX [Suspect]
     Indication: SMOKING CESSATION THERAPY
     Dosage: 1TAB 2 X DAILY PO
     Route: 048
     Dates: start: 20090215, end: 20100206

REACTIONS (4)
  - BEDRIDDEN [None]
  - EMOTIONAL DISORDER [None]
  - PAIN [None]
  - SUICIDAL IDEATION [None]
